FAERS Safety Report 5965881-9 (Version None)
Quarter: 2008Q4

REPORT INFORMATION
  Report Type: 
  Country: None (occurrence: None)
  Receive Date: 20081125
  Receipt Date: 20080919
  Transmission Date: 20090506
  Serious: No
  Sender: FDA-Public Use
  Company Number: US-AMGEN-KDL308950

PATIENT
  Sex: Female

DRUGS (2)
  1. ENBREL [Suspect]
     Indication: RHEUMATOID ARTHRITIS
     Route: 058
     Dates: start: 20071015
  2. ENBREL [Suspect]
     Indication: PSORIASIS

REACTIONS (8)
  - HYPERHIDROSIS [None]
  - IMPAIRED HEALING [None]
  - OROPHARYNGEAL PAIN [None]
  - PUSTULAR PSORIASIS [None]
  - PYREXIA [None]
  - SJOGREN'S SYNDROME [None]
  - TINEA INFECTION [None]
  - TOOTH INFECTION [None]
